FAERS Safety Report 16478244 (Version 3)
Quarter: 2020Q2

REPORT INFORMATION
  Report Type: Report from Study
  Country: DE (occurrence: DE)
  Receive Date: 20190626
  Receipt Date: 20200506
  Transmission Date: 20200713
  Serious: Yes (Other)
  Sender: FDA-Public Use
  Company Number: DE-ROCHE-1764118

PATIENT
  Age: 55 Year
  Sex: Female
  Weight: 93 kg

DRUGS (12)
  1. MEZAVANT [Concomitant]
     Active Substance: MESALAMINE
  2. OMEPRAZOL [OMEPRAZOLE] [Concomitant]
     Active Substance: OMEPRAZOLE
     Indication: COLITIS
     Route: 048
     Dates: start: 20150815
  3. METAMIZOL [Concomitant]
     Active Substance: METAMIZOLE SODIUM
     Indication: RHEUMATOID ARTHRITIS
     Route: 048
     Dates: start: 20160115
  4. TOCILIZUMAB. [Suspect]
     Active Substance: TOCILIZUMAB
     Route: 058
     Dates: start: 20150703, end: 20151218
  5. DECORTIN H [Concomitant]
     Active Substance: PREDNISOLONE
     Dosage: 1.0-0
     Route: 065
  6. TOCILIZUMAB. [Suspect]
     Active Substance: TOCILIZUMAB
     Indication: RHEUMATOID ARTHRITIS
     Route: 058
     Dates: start: 20150129, end: 20150604
  7. SALOFALK [MESALAZINE] [Concomitant]
     Active Substance: MESALAMINE
     Indication: COLITIS
     Route: 065
  8. VITAMIN D3 [Concomitant]
     Active Substance: CHOLECALCIFEROL
     Indication: PROPHYLAXIS
     Dosage: 20000 UNIT NOT REPORTED
     Route: 048
     Dates: start: 20140701
  9. SALOFALK [MESALAZINE] [Concomitant]
     Active Substance: MESALAMINE
     Dosage: 0-0.1
     Route: 054
  10. PREDNISOLON [PREDNISOLONE] [Concomitant]
     Active Substance: PREDNISOLONE
     Indication: RHEUMATOID ARTHRITIS
     Route: 048
     Dates: start: 20151223
  11. CORTISONE [Concomitant]
     Active Substance: CORTISONE
     Route: 065
  12. VIGANTOLETTEN [Concomitant]
     Active Substance: CHOLECALCIFEROL
     Dosage: 1.0-0
     Route: 065

REACTIONS (1)
  - Colitis ulcerative [Recovering/Resolving]
